FAERS Safety Report 11903747 (Version 1)
Quarter: 2016Q1

REPORT INFORMATION
  Report Type: Spontaneous
  Country: US (occurrence: US)
  Receive Date: 20160111
  Receipt Date: 20160111
  Transmission Date: 20160526
  Serious: Yes (Hospitalization, Disabling, Other)
  Sender: FDA-Public Use
  Company Number: US-JNJFOC-20151223977

PATIENT
  Sex: Male
  Weight: 127.01 kg

DRUGS (1)
  1. TYLENOL PM EXTRA STRENGTH [Suspect]
     Active Substance: ACETAMINOPHEN\DIPHENHYDRAMINE HYDROCHLORIDE
     Indication: TOOTHACHE
     Dosage: ONCE
     Route: 048
     Dates: start: 201007

REACTIONS (17)
  - Organ failure [Recovered/Resolved]
  - Resuscitation [Recovered/Resolved]
  - Coma [Recovered/Resolved]
  - Hepatic function abnormal [Recovered/Resolved]
  - Amnesia [Unknown]
  - Bone disorder [Recovered/Resolved]
  - Oropharyngeal scar [Unknown]
  - Weight increased [Recovered/Resolved]
  - Lung disorder [Recovered/Resolved]
  - Visual impairment [Unknown]
  - Renal failure [Recovered/Resolved]
  - Accidental overdose [Unknown]
  - Hypertension [Unknown]
  - Diabetes mellitus [Recovered/Resolved]
  - Blood cholesterol increased [Unknown]
  - Product packaging issue [Unknown]
  - Alopecia [Unknown]

NARRATIVE: CASE EVENT DATE: 2010
